FAERS Safety Report 6685149-5 (Version None)
Quarter: 2010Q2

REPORT INFORMATION
  Report Type: 
  Country: None (occurrence: None)
  Receive Date: 20100416
  Receipt Date: 20100406
  Transmission Date: 20101027
  Serious: Yes (Death, Life-Threatening, Hospitalization, Other)
  Sender: FDA-Public Use
  Company Number: CA-PFIZER INC-2008100130

PATIENT
  Age: 18 Year
  Sex: Male
  Weight: 84.3 kg

DRUGS (13)
  1. SUNITINIB MALATE [Suspect]
     Indication: ANGIOSARCOMA
     Route: 048
     Dates: start: 20081007, end: 20081111
  2. PEMETREXED [Suspect]
     Indication: ANGIOSARCOMA
     Dosage: 1000 MG, EVERY 3 WEEKS
     Route: 042
     Dates: start: 20081007, end: 20081029
  3. CISPLATIN [Suspect]
     Indication: ANGIOSARCOMA
     Dosage: 150 MG, EVERY 3 WEEKS
     Route: 042
     Dates: start: 20081007, end: 20081029
  4. TYLENOL-500 [Concomitant]
     Indication: PAIN IN JAW
     Dosage: 325 MG, 1 EVERY 6 HOURS
     Dates: start: 20080901
  5. FOLIC ACID [Concomitant]
     Indication: PROPHYLAXIS
     Dosage: 400 MG, 1X/DAY
     Dates: start: 20081003
  6. CYANOCOBALAMIN [Concomitant]
     Indication: PROPHYLAXIS
     Dosage: 1000 MG, EVERY 9 WEEKS
     Dates: start: 20081007
  7. GRAVOL TAB [Concomitant]
     Indication: NAUSEA
     Dosage: 50 MG, EVERY 6 HOURS
     Dates: start: 20081009
  8. PROCHLORPERAZINE [Concomitant]
     Indication: NAUSEA
     Dosage: 10 MG, EVERY 4 HRS
     Dates: start: 20081007
  9. PANTOLAX [Concomitant]
     Indication: PROPHYLAXIS AGAINST GASTROINTESTINAL ULCER
     Dosage: 40 MG, 1X/DAY
     Dates: start: 20081009
  10. TRIATEC [Concomitant]
     Indication: BACK PAIN
     Dosage: 30 MG, EVERY 4 HRS
     Dates: start: 20081118
  11. NAPROSYN [Concomitant]
     Indication: BACK PAIN
     Dosage: 250 MG, 2X/DAY
     Dates: start: 20081117
  12. SENOKOT [Concomitant]
     Indication: CONSTIPATION
     Dosage: 1-2 TABS, 2X/DAY
     Dates: start: 20081119
  13. COLACE [Concomitant]
     Indication: CONSTIPATION
     Dosage: 1-2 TABS, 2X/DAY
     Dates: start: 20081119

REACTIONS (1)
  - SPLENIC RUPTURE [None]
